FAERS Safety Report 18330150 (Version 6)
Quarter: 2022Q3

REPORT INFORMATION
  Report Type: Spontaneous
  Country: US (occurrence: US)
  Receive Date: 20200930
  Receipt Date: 20220922
  Transmission Date: 20221027
  Serious: Yes (Other)
  Sender: FDA-Public Use
  Company Number: US-TEVA-2020-US-1833549

PATIENT
  Age: 48 Year
  Sex: Female

DRUGS (1)
  1. QVAR REDIHALER [Suspect]
     Active Substance: BECLOMETHASONE DIPROPIONATE
     Indication: Product used for unknown indication
     Dosage: 2 PUFFS ALL AT ONCE
     Route: 065

REACTIONS (9)
  - COVID-19 [Recovered/Resolved]
  - Pneumonia [Recovering/Resolving]
  - Illness [Unknown]
  - Dyspnoea [Unknown]
  - Back pain [Unknown]
  - Stress [Unknown]
  - Blood pressure decreased [Unknown]
  - Gastrooesophageal reflux disease [Recovered/Resolved]
  - Musculoskeletal discomfort [Unknown]
